FAERS Safety Report 15220406 (Version 1)
Quarter: 2018Q3

REPORT INFORMATION
  Report Type: Spontaneous
  Country: US (occurrence: US)
  Receive Date: 20180731
  Receipt Date: 20180731
  Transmission Date: 20181010
  Serious: No
  Sender: FDA-Public Use
  Company Number: US-MYLANLABS-2018M1049485

PATIENT
  Age: 17 Year
  Sex: Female
  Weight: 68 kg

DRUGS (3)
  1. XULANE [Suspect]
     Active Substance: ETHINYL ESTRADIOL\NORELGESTROMIN
     Indication: CONTRACEPTION
     Dosage: UNK
     Route: 062
  2. SEROQUEL [Concomitant]
     Active Substance: QUETIAPINE FUMARATE
     Indication: AFFECTIVE DISORDER
  3. XULANE [Suspect]
     Active Substance: ETHINYL ESTRADIOL\NORELGESTROMIN
     Indication: PREMENSTRUAL DYSPHORIC DISORDER

REACTIONS (4)
  - Product use in unapproved indication [Not Recovered/Not Resolved]
  - Product physical issue [Recovered/Resolved]
  - Product adhesion issue [Recovered/Resolved]
  - Application site rash [Recovering/Resolving]
